FAERS Safety Report 20765848 (Version 8)
Quarter: 2025Q1

REPORT INFORMATION
  Report Type: Spontaneous
  Country: US (occurrence: US)
  Receive Date: 20220428
  Receipt Date: 20250220
  Transmission Date: 20250408
  Serious: No
  Sender: PFIZER
  Company Number: US-PFIZER INC-202200403682

PATIENT
  Age: 81 Year
  Sex: Female

DRUGS (5)
  1. IBRANCE [Suspect]
     Active Substance: PALBOCICLIB
     Indication: Breast cancer female
     Route: 048
  2. IBRANCE [Suspect]
     Active Substance: PALBOCICLIB
     Route: 048
  3. IBRANCE [Suspect]
     Active Substance: PALBOCICLIB
     Route: 048
  4. NEURONTIN [Concomitant]
     Active Substance: GABAPENTIN
     Dosage: 200 MG, 1X/DAY (TAKE 2 CAPSULES (200 MG TOTAL), NIGHTLY))
     Route: 048
  5. NORVASC [Concomitant]
     Active Substance: AMLODIPINE BESYLATE
     Dosage: 5 MG, DAILY (1/2 TABLET EVERYDAY)

REACTIONS (3)
  - Glucose tolerance impaired [Unknown]
  - Ageusia [Unknown]
  - Stress [Unknown]
